FAERS Safety Report 8306534-1 (Version None)
Quarter: 2012Q2

REPORT INFORMATION
  Report Type: 
  Country: None (occurrence: None)
  Receive Date: 20120420
  Receipt Date: 20120420
  Transmission Date: 20120825
  Serious: No
  Sender: FDA-Public Use
  Company Number: None

PATIENT
  Age: 88 Year
  Sex: Male
  Weight: 91.4 kg

DRUGS (1)
  1. IOVERSOL [Suspect]
     Indication: COMPUTERISED TOMOGRAM
     Dates: start: 20110222, end: 20110222

REACTIONS (2)
  - PRURITUS [None]
  - RASH [None]
